FAERS Safety Report 4795799-9 (Version None)
Quarter: 2005Q3

REPORT INFORMATION
  Report Type: 
  Country: None (occurrence: None)
  Receive Date: 20050916
  Receipt Date: 20040727
  Transmission Date: 20060218
  Serious: Yes (Hospitalization)
  Sender: FDA-Public Use
  Company Number: US-JNJFOC-20040505444

PATIENT
  Age: 38 Year
  Sex: Female
  Weight: 71 kg

DRUGS (12)
  1. TOPAMAX [Suspect]
     Indication: DEPRESSION
     Dosage: 200 MG, IN 1 DAY, ORAL
     Route: 048
     Dates: start: 20040201, end: 20040501
  2. TOPAMAX [Suspect]
     Dosage: 150 MG, IN 1 DAY, ORAL
     Route: 048
     Dates: start: 20040518, end: 20040530
  3. BACLOFEN [Concomitant]
  4. ALLEGRA [Concomitant]
  5. DIFLUCAN [Concomitant]
  6. PREVACID [Concomitant]
  7. LEVOTHROID [Concomitant]
  8. EFFEXOR XR [Concomitant]
  9. DIAZEPAM [Concomitant]
  10. NITROFURANTOIN MACROCRYSTALS (NITROFURANTOIN) CAPSULES [Concomitant]
  11. PROAMATINE (MIDODRINE HYDROCHLORIDE) TABLETS [Concomitant]
  12. LORAZEPAM [Concomitant]

REACTIONS (1)
  - HALLUCINATION [None]
